FAERS Safety Report 13813299 (Version 8)
Quarter: 2017Q4

REPORT INFORMATION
  Report Type: Report from Study
  Country: IL (occurrence: IL)
  Receive Date: 20170729
  Receipt Date: 20171004
  Transmission Date: 20180320
  Serious: Yes (Hospitalization, Other)
  Sender: FDA-Public Use
  Company Number: IL-AMGEN-ISRSL2017111946

PATIENT
  Sex: Male

DRUGS (1)
  1. NPLATE [Suspect]
     Active Substance: ROMIPLOSTIM
     Indication: IMMUNE THROMBOCYTOPENIC PURPURA
     Dosage: 330 MUG, QWK
     Route: 065
     Dates: start: 201704

REACTIONS (11)
  - Haemoglobin decreased [Unknown]
  - Urinary tract infection [Recovering/Resolving]
  - Tremor [Recovering/Resolving]
  - Neutrophil count decreased [Unknown]
  - Blood potassium decreased [Unknown]
  - Rectal haemorrhage [Unknown]
  - Oedema peripheral [Unknown]
  - Platelet count abnormal [Recovering/Resolving]
  - Asthenia [Recovering/Resolving]
  - Pyrexia [Recovering/Resolving]
  - Blood count abnormal [Unknown]

NARRATIVE: CASE EVENT DATE: 2017
